FAERS Safety Report 4777030-3 (Version None)
Quarter: 2005Q3

REPORT INFORMATION
  Report Type: 
  Country: None (occurrence: None)
  Receive Date: 20050921
  Receipt Date: 20050908
  Transmission Date: 20060218
  Serious: Yes (Hospitalization)
  Sender: FDA-Public Use
  Company Number: 2005BI015399

PATIENT
  Age: 56 Year
  Sex: Female
  Weight: 74.8435 kg

DRUGS (16)
  1. AVONEX [Suspect]
     Indication: MULTIPLE SCLEROSIS
     Dosage: 30 UG;QW;IM
     Route: 030
     Dates: start: 19980128, end: 20030801
  2. AVONEX [Suspect]
     Indication: MULTIPLE SCLEROSIS
     Dosage: 30 UG;QW;IM
     Route: 030
     Dates: start: 20030801, end: 20050722
  3. AVONEX [Suspect]
     Indication: MULTIPLE SCLEROSIS
     Dosage: 30 UG;QW;IM
     Route: 030
     Dates: start: 20050816
  4. ADVAIR DISKUS 100/50 [Concomitant]
  5. IPRATROPIUM BROMIDE [Concomitant]
  6. LORATADINE [Concomitant]
  7. PROTONIX [Concomitant]
  8. CARAFATE [Concomitant]
  9. DONNATAL [Concomitant]
  10. VASOTEC [Concomitant]
  11. HYOSCYAMINE [Concomitant]
  12. ESTROGEN [Concomitant]
  13. PROVIGIL [Concomitant]
  14. ULTRAM [Concomitant]
  15. NEURONTIN [Concomitant]
  16. TRANXENE [Concomitant]

REACTIONS (20)
  - ARTHRITIS [None]
  - BACK PAIN [None]
  - BLOOD CHOLESTEROL INCREASED [None]
  - CARPAL TUNNEL SYNDROME [None]
  - CONDITION AGGRAVATED [None]
  - DEPRESSION [None]
  - DISORIENTATION [None]
  - FATIGUE [None]
  - HYPOAESTHESIA [None]
  - INTERVERTEBRAL DISC DEGENERATION [None]
  - MASS [None]
  - MULTIPLE SCLEROSIS [None]
  - PAIN [None]
  - PAIN IN EXTREMITY [None]
  - PANIC DISORDER [None]
  - POST PROCEDURAL COMPLICATION [None]
  - SINUSITIS [None]
  - THINKING ABNORMAL [None]
  - THYROID DISORDER [None]
  - VERTIGO [None]
